FAERS Safety Report 8512385 (Version 5)
Quarter: 2014Q4

REPORT INFORMATION
  Report Type: Spontaneous
  Country: US (occurrence: US)
  Receive Date: 20120413
  Receipt Date: 20141105
  Transmission Date: 20150529
  Serious: No
  Sender: FDA-Public Use
  Company Number: US-ASTRAZENECA-2012SE11400

PATIENT
  Age: 72 Year
  Sex: Female

DRUGS (13)
  1. AMITRIPTALINE [Concomitant]
     Active Substance: AMITRIPTYLINE
     Indication: SLEEP DISORDER
  2. D3 [Concomitant]
     Active Substance: 25-HYDROXYCHOLECALCIFEROL, 5-TRANS-
     Indication: ARTHRITIS
  3. NEXIUM [Suspect]
     Active Substance: ESOMEPRAZOLE MAGNESIUM
     Indication: GASTROOESOPHAGEAL REFLUX DISEASE
     Route: 048
  4. WOMENS ONE A DAY [Concomitant]
  5. NEXIUM [Suspect]
     Active Substance: ESOMEPRAZOLE MAGNESIUM
     Indication: DYSPEPSIA
     Route: 048
  6. METOPROLOL TARTE [Suspect]
     Active Substance: METOPROLOL TARTRATE
     Indication: BLOOD PRESSURE ABNORMAL
     Route: 048
  7. NEXIUM [Suspect]
     Active Substance: ESOMEPRAZOLE MAGNESIUM
     Indication: DYSPEPSIA
     Dosage: EVERY OTHER DAY
     Route: 048
  8. NEXIUM [Suspect]
     Active Substance: ESOMEPRAZOLE MAGNESIUM
     Indication: GASTROOESOPHAGEAL REFLUX DISEASE
     Dosage: EVERY OTHER DAY
     Route: 048
  9. ASPIRIN. [Concomitant]
     Active Substance: ASPIRIN
  10. CALCIUM [Concomitant]
     Active Substance: CALCIUM
     Indication: ARTHRITIS
  11. NEXIUM [Suspect]
     Active Substance: ESOMEPRAZOLE MAGNESIUM
     Indication: DYSPEPSIA
     Route: 048
  12. NEXIUM [Suspect]
     Active Substance: ESOMEPRAZOLE MAGNESIUM
     Indication: GASTROOESOPHAGEAL REFLUX DISEASE
     Route: 048
  13. PRAVASTATIN [Concomitant]
     Active Substance: PRAVASTATIN\PRAVASTATIN SODIUM
     Indication: BLOOD CHOLESTEROL ABNORMAL

REACTIONS (7)
  - Gastrooesophageal reflux disease [Unknown]
  - Dermatitis contact [Unknown]
  - Gastric disorder [Unknown]
  - Off label use [Unknown]
  - Intentional product misuse [Unknown]
  - Drug dose omission [Unknown]
  - Dyspepsia [Unknown]

NARRATIVE: CASE EVENT DATE: 2013
